FAERS Safety Report 9970186 (Version 2)
Quarter: 2014Q1

REPORT INFORMATION
  Report Type: Spontaneous
  Country: ES (occurrence: None)
  Receive Date: 20140304
  Receipt Date: 20140307
  Transmission Date: 20141002
  Serious: Yes (Other)
  Sender: FDA-Public Use
  Company Number: E2B_7272689

PATIENT
  Age: 87 Year
  Sex: Male

DRUGS (1)
  1. EUTHYROX [Suspect]
     Indication: PRODUCT USED FOR UNKNOWN INDICATION
     Dosage: 75 MCG 2 IN 1 D
     Route: 048
     Dates: start: 201301

REACTIONS (2)
  - Blood thyroid stimulating hormone increased [None]
  - Incorrect dose administered [None]
